FAERS Safety Report 8370278-0 (Version None)
Quarter: 2012Q2

REPORT INFORMATION
  Report Type: 
  Country: None (occurrence: None)
  Receive Date: 20120518
  Receipt Date: 20110428
  Transmission Date: 20120825
  Serious: No
  Sender: FDA-Public Use
  Company Number: US-ASTRAZENECA-2011SE27160

PATIENT

DRUGS (2)
  1. PRILOSEC OTC [Suspect]
     Dosage: UNKNOWN
     Route: 048
     Dates: end: 20110421
  2. CARDIOVASCULAR SYSTEM DRUGS [Suspect]
     Dosage: UNKNOWN
     Route: 048

REACTIONS (3)
  - PAIN IN EXTREMITY [None]
  - MUSCLE SPASMS [None]
  - INCORRECT DRUG ADMINISTRATION DURATION [None]
